FAERS Safety Report 23171049 (Version 1)
Quarter: 2023Q4

REPORT INFORMATION
  Report Type: Spontaneous
  Country: GR (occurrence: GR)
  Receive Date: 20231110
  Receipt Date: 20231110
  Transmission Date: 20240110
  Serious: Yes (Hospitalization, Other)
  Sender: FDA-Public Use
  Company Number: GR-AMGEN-GRCSP2023188470

PATIENT

DRUGS (7)
  1. PROPRANOLOL [Suspect]
     Active Substance: PROPRANOLOL HYDROCHLORIDE
     Indication: Product used for unknown indication
     Dosage: UNK
     Route: 065
  2. FILGRASTIM [Suspect]
     Active Substance: FILGRASTIM
     Indication: Product used for unknown indication
     Dosage: UNK
     Route: 065
  3. IMIPENEM [Suspect]
     Active Substance: IMIPENEM
     Indication: Product used for unknown indication
     Dosage: UNK
     Route: 042
  4. ACYCLOVIR [Suspect]
     Active Substance: ACYCLOVIR
     Indication: Product used for unknown indication
     Dosage: UNK
     Route: 065
  5. DEXAMETHASONE [Suspect]
     Active Substance: DEXAMETHASONE
     Indication: Product used for unknown indication
     Dosage: UNK
     Route: 065
  6. COLCHICINE [Concomitant]
     Active Substance: COLCHICINE
     Indication: Aspergillus infection
     Dosage: UNK, THREE MONTHS
     Route: 065
  7. VORICONAZOLE [Concomitant]
     Active Substance: VORICONAZOLE
     Indication: Aspergillus infection
     Dosage: UNK, THREE MONTHS
     Route: 065

REACTIONS (3)
  - Aspergillus infection [Unknown]
  - Pericarditis fungal [Unknown]
  - Cardiac tamponade [Unknown]
